FAERS Safety Report 14783084 (Version 5)
Quarter: 2018Q3

REPORT INFORMATION
  Report Type: Spontaneous
  Country: US (occurrence: US)
  Receive Date: 20180420
  Receipt Date: 20180905
  Transmission Date: 20181010
  Serious: Yes (Congenital Anomaly, Other)
  Sender: FDA-Public Use
  Company Number: PHEH2018US014551

PATIENT
  Sex: Female

DRUGS (1)
  1. ZOFRAN ODT [Suspect]
     Active Substance: ONDANSETRON HYDROCHLORIDE
     Indication: FOETAL EXPOSURE DURING PREGNANCY
     Dosage: MOTHER DOSE: 08 MG, BID
     Route: 064

REACTIONS (46)
  - Deformity [Unknown]
  - Dental caries [Unknown]
  - Brachycephaly [Unknown]
  - Anhedonia [Unknown]
  - Emotional distress [Unknown]
  - Nose deformity [Unknown]
  - Otitis media [Unknown]
  - Teething [Unknown]
  - Constipation [Unknown]
  - Malocclusion [Unknown]
  - Micrognathia [Unknown]
  - Injury [Unknown]
  - Language disorder [Unknown]
  - Ear infection [Unknown]
  - Pyrexia [Unknown]
  - Dysuria [Unknown]
  - Lymphadenopathy [Unknown]
  - Dysphonia [Unknown]
  - Foetal exposure during pregnancy [Unknown]
  - Speech disorder [Unknown]
  - Candida infection [Unknown]
  - Fistula [Unknown]
  - Pollakiuria [Unknown]
  - Ear pain [Unknown]
  - Cleft lip and palate [Unknown]
  - Deafness [Unknown]
  - Vocal cord thickening [Unknown]
  - Apraxia [Unknown]
  - Leukoplakia oral [Unknown]
  - Poor feeding infant [Unknown]
  - Hypertrophic scar [Unknown]
  - Acute sinusitis [Unknown]
  - Eustachian tube dysfunction [Unknown]
  - Middle ear effusion [Unknown]
  - Pain [Unknown]
  - Upper respiratory tract infection [Unknown]
  - Cough [Unknown]
  - Viral infection [Unknown]
  - Abdominal pain [Unknown]
  - Otitis media acute [Unknown]
  - Otitis media chronic [Unknown]
  - Scar [Unknown]
  - Nasal septum deviation [Unknown]
  - Tympanosclerosis [Unknown]
  - Speech sound disorder [Unknown]
  - Cerumen impaction [Unknown]
